FAERS Safety Report 15672936 (Version 2)
Quarter: 2018Q4

REPORT INFORMATION
  Report Type: Report from Study
  Country: None (occurrence: US)
  Receive Date: 20181129
  Receipt Date: 20181129
  Transmission Date: 20190205
  Serious: Yes (Hospitalization)
  Sender: FDA-Public Use
  Company Number: US-ABBVIE-18P-163-2533275-00

PATIENT
  Age: 38 Year
  Sex: Female
  Weight: 79.45 kg

DRUGS (21)
  1. ADIPEX-P [Concomitant]
     Active Substance: PHENTERMINE HYDROCHLORIDE
     Indication: WEIGHT CONTROL
     Route: 048
     Dates: start: 20150101
  2. GINKO BILOBA [Concomitant]
     Active Substance: GINKGO
     Indication: PROPHYLAXIS
     Route: 048
     Dates: start: 20150101
  3. VITAMIN D3 [Concomitant]
     Active Substance: CHOLECALCIFEROL
     Indication: VITAMIN D DECREASED
     Route: 048
     Dates: start: 20140801
  4. TURMERIC CURCUMIN [Concomitant]
     Active Substance: HERBALS\TURMERIC
     Indication: SUPPLEMENTATION THERAPY
     Route: 048
     Dates: start: 20150101
  5. CRANBERRY FRUIT 2 CONCENTRATE [Concomitant]
     Indication: PROPHYLAXIS URINARY TRACT INFECTION
     Route: 048
     Dates: start: 20150101
  6. FISH OIL WITH OMEGA 3 AND VITAMIN D [Concomitant]
     Indication: SUPPLEMENTATION THERAPY
     Dosage: 1200(FISH OIL) 600(OMEGA 3), 2000IU(VITAMIN D)
     Route: 048
     Dates: start: 20150101
  7. FISH OIL WITH OMEGA 3 AND VITAMIN D [Concomitant]
     Indication: BLOOD CHOLESTEROL INCREASED
  8. PROBIOTIC MULTI ENZYME 2 [Concomitant]
     Indication: DYSPEPSIA
     Route: 048
     Dates: start: 20150101
  9. HYDROXYZINE HCL [Concomitant]
     Active Substance: HYDROXYZINE HYDROCHLORIDE
     Indication: HYPERSENSITIVITY
  10. COCONUT OIL [Concomitant]
     Active Substance: COCONUT OIL
     Indication: HAIR DISORDER
     Route: 048
     Dates: start: 20150101
  11. VITAMIN C [Concomitant]
     Active Substance: ASCORBIC ACID
     Indication: VITAMIN SUPPLEMENTATION
     Route: 048
     Dates: start: 20150101
  12. ESTRADIOL/NORETHINDRONE ACETATE [Suspect]
     Active Substance: ESTRADIOL\NORETHINDRONE ACETATE
     Dosage: 1.0 MG/0.5 MG
     Route: 048
     Dates: start: 20181102
  13. BIOTIN [Concomitant]
     Active Substance: BIOTIN
     Indication: HAIR DISORDER
     Route: 048
     Dates: start: 20150101
  14. COCONUT OIL [Concomitant]
     Active Substance: COCONUT OIL
     Indication: SKIN DISORDER
  15. ELAGOLIX [Suspect]
     Active Substance: ELAGOLIX
     Route: 048
     Dates: start: 20181102
  16. HYDROXYZINE HCL [Concomitant]
     Active Substance: HYDROXYZINE HYDROCHLORIDE
     Indication: SLEEP DISORDER
     Route: 048
     Dates: start: 20150101
  17. BIOTIN [Concomitant]
     Active Substance: BIOTIN
     Indication: NAIL DISORDER
  18. HYDROCHLOROTHIAZIDE. [Concomitant]
     Active Substance: HYDROCHLOROTHIAZIDE
     Indication: ABDOMINAL DISTENSION
     Route: 048
     Dates: start: 20180604
  19. ELAGOLIX [Suspect]
     Active Substance: ELAGOLIX
     Indication: ENDOMETRIOSIS
     Route: 048
     Dates: start: 20180607, end: 20181021
  20. ESTRADIOL/NORETHINDRONE ACETATE [Suspect]
     Active Substance: ESTRADIOL\NORETHINDRONE ACETATE
     Indication: ENDOMETRIOSIS
     Dosage: 1.0 MG/0.5 MG
     Route: 048
     Dates: start: 20180607, end: 20181021
  21. METABOLISM SUPPORT 2 [Concomitant]
     Indication: METABOLIC DISORDER
     Route: 048
     Dates: start: 20150101

REACTIONS (2)
  - Vestibular migraine [Recovered/Resolved]
  - Vestibular disorder [Recovered/Resolved]

NARRATIVE: CASE EVENT DATE: 20181021
